FAERS Safety Report 8076051-5 (Version None)
Quarter: 2012Q1

REPORT INFORMATION
  Report Type: 
  Country: None (occurrence: None)
  Receive Date: 20120127
  Receipt Date: 20110614
  Transmission Date: 20120608
  Serious: No
  Sender: FDA-Public Use
  Company Number: US-GLAXOSMITHKLINE-A0931477A

PATIENT
  Age: 45 Year
  Sex: Female

DRUGS (2)
  1. BUPROPION HYDROCHLORIDE [Suspect]
     Indication: TEARFULNESS
     Dosage: 150MG PER DAY
     Route: 048
  2. SERTRALINE HYDROCHLORIDE [Concomitant]

REACTIONS (1)
  - BLOOD PROLACTIN INCREASED [None]
